FAERS Safety Report 18137706 (Version 1)
Quarter: 2020Q3

REPORT INFORMATION
  Report Type: Spontaneous
  Country: US (occurrence: US)
  Receive Date: 20200811
  Receipt Date: 20200811
  Transmission Date: 20201103
  Serious: No
  Sender: FDA-Public Use
  Company Number: US-ROCHE-2354038

PATIENT
  Sex: Female
  Weight: 71.73 kg

DRUGS (1)
  1. BONIVA [Suspect]
     Active Substance: IBANDRONATE SODIUM
     Indication: OSTEOPOROSIS
     Route: 048
     Dates: start: 201906

REACTIONS (2)
  - Micturition urgency [Not Recovered/Not Resolved]
  - Small fibre neuropathy [Not Recovered/Not Resolved]
